FAERS Safety Report 4402358-6 (Version None)
Quarter: 2004Q3

REPORT INFORMATION
  Report Type: 
  Country: None (occurrence: None)
  Receive Date: 20040716
  Receipt Date: 20040714
  Transmission Date: 20050211
  Serious: Yes (Hospitalization, Other)
  Sender: FDA-Public Use
  Company Number: 04-07-1005

PATIENT
  Age: 58 Year
  Sex: Female

DRUGS (2)
  1. NEFAZODONE TABLETS [Suspect]
     Dosage: 100 MG BID ORAL
     Route: 048
  2. GLIPIZIDE [Concomitant]

REACTIONS (3)
  - BLOOD MAGNESIUM INCREASED [None]
  - BRADYCARDIA [None]
  - TORSADE DE POINTES [None]
